FAERS Safety Report 17155776 (Version 1)
Quarter: 2019Q4

REPORT INFORMATION
  Report Type: Spontaneous
  Country: SE (occurrence: SE)
  Receive Date: 20191215
  Receipt Date: 20191215
  Transmission Date: 20200122
  Serious: Yes (Hospitalization, Other)
  Sender: FDA-Public Use
  Company Number: SE-SA-2019SA342558

PATIENT
  Age: 43 Year
  Sex: Female

DRUGS (3)
  1. DIAZEPAM. [Suspect]
     Active Substance: DIAZEPAM
     Dosage: 2 UNITS AT 10 MG
     Route: 065
     Dates: start: 20180710, end: 20180710
  2. ZOLPIDEM TARTRATE. [Suspect]
     Active Substance: ZOLPIDEM TARTRATE
     Dosage: 2 TABLETS
     Route: 065
     Dates: start: 20180710, end: 20180710
  3. PROPAVAN [Suspect]
     Active Substance: PROPIOMAZINE
     Dosage: CA 21 TABLET
     Route: 048
     Dates: start: 20180710, end: 20180710

REACTIONS (3)
  - Intentional self-injury [Unknown]
  - Intentional overdose [Unknown]
  - Fatigue [Unknown]

NARRATIVE: CASE EVENT DATE: 20180710
